FAERS Safety Report 7929518-1 (Version None)
Quarter: 2011Q4

REPORT INFORMATION
  Report Type: 
  Country: None (occurrence: None)
  Receive Date: 20111121
  Receipt Date: 20111110
  Transmission Date: 20120403
  Serious: Yes (Life-Threatening, Hospitalization, Other)
  Sender: FDA-Public Use
  Company Number: CA-ELI_LILLY_AND_COMPANY-CA201111003351

PATIENT
  Sex: Female

DRUGS (1)
  1. ZYPREXA [Suspect]
     Indication: BIPOLAR DISORDER
     Dosage: 1 DF, UNK

REACTIONS (7)
  - MYOCARDIAL INFARCTION [None]
  - ABDOMINAL PAIN [None]
  - HYPOGLYCAEMIA [None]
  - PANCREATITIS [None]
  - PAIN [None]
  - HAEMATEMESIS [None]
  - BLOOD POTASSIUM DECREASED [None]
